FAERS Safety Report 9226646 (Version 1)
Quarter: 2013Q2

REPORT INFORMATION
  Report Type: Spontaneous
  Country: US (occurrence: US)
  Receive Date: 20130412
  Receipt Date: 20130412
  Transmission Date: 20140414
  Serious: No
  Sender: FDA-Public Use
  Company Number: US-PFIZER INC-2013112306

PATIENT
  Age: 67 Year
  Sex: Female
  Weight: 48.07 kg

DRUGS (4)
  1. NIFEDIPINE [Suspect]
     Indication: HYPERTENSION
     Dosage: 30 MG, 2X/DAY
     Route: 048
     Dates: start: 20130330
  2. CLONIDINE [Concomitant]
     Indication: HYPERTENSION
     Dosage: 0.1 MG, UNK
  3. LISINOPRIL [Concomitant]
     Dosage: UNK
  4. COREG [Concomitant]
     Dosage: 6.25 MG, UNK

REACTIONS (2)
  - Inappropriate schedule of drug administration [Unknown]
  - Blood pressure inadequately controlled [Unknown]
